FAERS Safety Report 4370696-1 (Version None)
Quarter: 2004Q2

REPORT INFORMATION
  Report Type: 
  Country: None (occurrence: None)
  Receive Date: 20040601
  Receipt Date: 20040520
  Transmission Date: 20050107
  Serious: Yes (Hospitalization)
  Sender: FDA-Public Use
  Company Number: 2004-116344-NL

PATIENT
  Age: 79 Year
  Sex: Female

DRUGS (10)
  1. DANAPAROID SODIUM [Suspect]
     Indication: DISSEMINATED INTRAVASCULAR COAGULATION
     Dosage: 2500 ANTI_XA
     Route: 042
     Dates: start: 20030720, end: 20030725
  2. CEFOTIAM HYDROCHLORIDE [Concomitant]
  3. RANITIDINE HYDROCHLORIDE [Concomitant]
  4. IMMUNOGLOBULIN HUMAN NORMAL [Concomitant]
  5. NITRAZEPAM [Concomitant]
  6. FENTANYL CITRATE [Concomitant]
  7. PROPOFOL [Concomitant]
  8. FUROSEMIDE [Concomitant]
  9. NICARDIPINE HYDROCHLORIDE [Concomitant]
  10. HUMULIN [Concomitant]

REACTIONS (8)
  - ASPARTATE AMINOTRANSFERASE INCREASED [None]
  - BLOOD LACTATE DEHYDROGENASE INCREASED [None]
  - BLOOD PRESSURE INCREASED [None]
  - DECUBITUS ULCER [None]
  - HEPATIC FUNCTION ABNORMAL [None]
  - INFECTION [None]
  - RENAL IMPAIRMENT [None]
  - WHITE BLOOD CELL COUNT INCREASED [None]
